FAERS Safety Report 17674866 (Version 3)
Quarter: 2020Q2

REPORT INFORMATION
  Report Type: Spontaneous
  Country: US (occurrence: US)
  Receive Date: 20200416
  Receipt Date: 20200610
  Transmission Date: 20200714
  Serious: No
  Sender: FDA-Public Use
  Company Number: US-PFIZER INC-2020156174

PATIENT
  Age: 54 Year
  Sex: Male

DRUGS (1)
  1. XELJANZ XR [Suspect]
     Active Substance: TOFACITINIB CITRATE
     Indication: RHEUMATOID ARTHRITIS
     Dosage: 11 MG, 1X/DAY
     Route: 048
     Dates: start: 20191119

REACTIONS (5)
  - Pain [Recovered/Resolved]
  - Therapeutic product effect incomplete [Recovering/Resolving]
  - Swelling [Recovered/Resolved]
  - Tendonitis [Recovered/Resolved]
  - Gout [Recovered/Resolved]
